FAERS Safety Report 6067107-7 (Version None)
Quarter: 2009Q1

REPORT INFORMATION
  Report Type: 
  Country: None (occurrence: None)
  Receive Date: 20090204
  Receipt Date: 20090204
  Transmission Date: 20090719
  Serious: Yes (Other)
  Sender: FDA-Public Use
  Company Number: None

PATIENT
  Age: 29 Year
  Sex: Female
  Weight: 58 kg

DRUGS (4)
  1. SOMATONORM  -SOMATREM- FROM SWITZERLAND [Suspect]
     Indication: GROWTH RETARDATION
     Dosage: ONE VIAL FLASK EACH OTHER DAY IM
     Route: 030
     Dates: start: 19850112, end: 19851220
  2. SOMATONORM  -SOMATREM- FROM SWITZERLAND [Suspect]
     Indication: HYPOPITUITARISM
     Dosage: ONE VIAL FLASK EACH OTHER DAY IM
     Route: 030
     Dates: start: 19850112, end: 19851220
  3. HUMATROPE [Suspect]
     Indication: GROWTH HORMONE DEFICIENCY
     Dosage: ONE VIAL FLASK EACH OTHER DAY IM
     Route: 030
     Dates: start: 19851212, end: 19940410
  4. HUMATROPE [Suspect]
     Indication: GROWTH RETARDATION
     Dosage: ONE VIAL FLASK EACH OTHER DAY IM
     Route: 030
     Dates: start: 19851212, end: 19940410

REACTIONS (5)
  - AGGRESSION [None]
  - BONE DENSITY DECREASED [None]
  - DEPRESSION [None]
  - EMOTIONAL DISORDER [None]
  - IRRITABILITY [None]
